FAERS Safety Report 8056519-8 (Version None)
Quarter: 2012Q1

REPORT INFORMATION
  Report Type: 
  Country: None (occurrence: None)
  Receive Date: 20120119
  Receipt Date: 20120116
  Transmission Date: 20120608
  Serious: Yes (Death, Other)
  Sender: FDA-Public Use
  Company Number: US-ELI_LILLY_AND_COMPANY-US201201004721

PATIENT
  Sex: Female

DRUGS (1)
  1. GEMZAR [Suspect]
     Indication: BREAST CANCER STAGE IV
     Dosage: 1500 MG, ON FOR 3 WEEKS OFF FOR 1 WEEK
     Dates: start: 20100810

REACTIONS (2)
  - METASTASIS [None]
  - DEATH [None]
